FAERS Safety Report 9125590 (Version 1)
Quarter: 2013Q1

REPORT INFORMATION
  Report Type: Spontaneous
  Country: FR (occurrence: FR)
  Receive Date: 20130121
  Receipt Date: 20130121
  Transmission Date: 20140127
  Serious: Yes (Hospitalization)
  Sender: FDA-Public Use
  Company Number: FR-GLAXOSMITHKLINE-B0857054A

PATIENT
  Age: 48 None
  Sex: Female

DRUGS (3)
  1. SERETIDE [Suspect]
     Indication: BRONCHIAL HYPERREACTIVITY
     Route: 055
     Dates: start: 2009, end: 20121112
  2. SINGULAIR [Suspect]
     Indication: BRONCHIAL HYPERREACTIVITY
     Dosage: 10MG PER DAY
     Route: 048
     Dates: start: 2006, end: 20121112
  3. LYRICA [Concomitant]

REACTIONS (13)
  - Allergic granulomatous angiitis [Recovering/Resolving]
  - Paraesthesia [Recovering/Resolving]
  - Vascular purpura [Recovering/Resolving]
  - Skin necrosis [Recovering/Resolving]
  - Inflammation [Recovered/Resolved]
  - Scratch [Recovering/Resolving]
  - Hyperaesthesia [Recovering/Resolving]
  - Dyspnoea [Recovering/Resolving]
  - Leukocytosis [Recovered/Resolved]
  - Eosinophilia [Recovered/Resolved]
  - Rhabdomyolysis [Unknown]
  - Leukocytoclastic vasculitis [Recovering/Resolving]
  - Peripheral sensory neuropathy [Recovering/Resolving]
